FAERS Safety Report 6743280-X (Version None)
Quarter: 2010Q2

REPORT INFORMATION
  Report Type: 
  Country: None (occurrence: None)
  Receive Date: 20100525
  Receipt Date: 20100512
  Transmission Date: 20101027
  Serious: Yes (Death)
  Sender: FDA-Public Use
  Company Number: 009567

PATIENT
  Sex: Male

DRUGS (1)
  1. SAMSCA [Suspect]
     Dosage: 30 MG, ORAL
     Route: 048

REACTIONS (4)
  - CONDITION AGGRAVATED [None]
  - HIV INFECTION [None]
  - MALIGNANT NEOPLASM PROGRESSION [None]
  - METASTATIC BRONCHIAL CARCINOMA [None]
